FAERS Safety Report 16619660 (Version 2)
Quarter: 2019Q3

REPORT INFORMATION
  Report Type: Report from Study
  Country: US (occurrence: US)
  Receive Date: 20190723
  Receipt Date: 20190821
  Transmission Date: 20191004
  Serious: Yes (Other)
  Sender: FDA-Public Use
  Company Number: US-JNJFOC-20190723069

PATIENT
  Sex: Male

DRUGS (1)
  1. IMBRUVICA [Suspect]
     Active Substance: IBRUTINIB
     Indication: CHRONIC LYMPHOCYTIC LEUKAEMIA
     Dosage: 140 MG, QD
     Route: 048
     Dates: start: 20190326

REACTIONS (11)
  - Cellulitis streptococcal [Unknown]
  - White blood cell count increased [Unknown]
  - Bone pain [Unknown]
  - Immune system disorder [Unknown]
  - Sciatica [Not Recovered/Not Resolved]
  - Swelling [Unknown]
  - Head discomfort [Unknown]
  - Gastrooesophageal reflux disease [Recovering/Resolving]
  - Nasopharyngitis [Unknown]
  - Platelet count increased [Unknown]
  - Red blood cell count decreased [Recovered/Resolved]
